FAERS Safety Report 5150165-1 (Version None)
Quarter: 2006Q4

REPORT INFORMATION
  Report Type: 
  Country: None (occurrence: None)
  Receive Date: 20061114
  Receipt Date: 20061106
  Transmission Date: 20070319
  Serious: Yes (Life-Threatening)
  Sender: FDA-Public Use
  Company Number: IT-JNJFOC-20061101583

PATIENT
  Sex: Female

DRUGS (5)
  1. SERENASE [Suspect]
     Indication: DRUG USE FOR UNKNOWN INDICATION
     Route: 048
  2. TRIATEC [Suspect]
     Indication: CARDIAC FAILURE
     Route: 048
  3. ALDACTONE [Suspect]
     Indication: CARDIAC FAILURE
     Route: 048
  4. NITROGLYCERIN [Concomitant]
  5. FUROSEMIDE [Concomitant]

REACTIONS (1)
  - TOXIC EPIDERMAL NECROLYSIS [None]
